FAERS Safety Report 6758396-1 (Version None)
Quarter: 2010Q2

REPORT INFORMATION
  Report Type: 
  Country: None (occurrence: None)
  Receive Date: 20100607
  Receipt Date: 20100525
  Transmission Date: 20101027
  Serious: Yes (Other)
  Sender: FDA-Public Use
  Company Number: US-CELGENEUS-163-21880-10052134

PATIENT
  Sex: Male

DRUGS (3)
  1. REVLIMID [Suspect]
     Route: 048
     Dates: start: 20100201, end: 20100401
  2. REVLIMID [Suspect]
     Route: 048
  3. REVLIMID [Suspect]
     Route: 048

REACTIONS (1)
  - OPTIC NERVE DISORDER [None]
